FAERS Safety Report 5797313-8 (Version None)
Quarter: 2008Q2

REPORT INFORMATION
  Report Type: 
  Country: None (occurrence: None)
  Receive Date: 20080627
  Receipt Date: 20080623
  Transmission Date: 20081010
  Serious: Yes (Life-Threatening, Hospitalization)
  Sender: FDA-Public Use
  Company Number: 2008SP012270

PATIENT
  Age: 44 Year
  Sex: Male

DRUGS (1)
  1. TEMOZOLOMIDE [Suspect]
     Indication: METASTASES TO CENTRAL NERVOUS SYSTEM
     Dosage: 135 MG; PO
     Route: 048
     Dates: start: 20080528, end: 20080616

REACTIONS (3)
  - CHEST PAIN [None]
  - DYSPNOEA [None]
  - EMBOLISM [None]
